FAERS Safety Report 8937172 (Version 1)
Quarter: 2012Q4

REPORT INFORMATION
  Report Type: Spontaneous
  Country: US (occurrence: None)
  Receive Date: 20121128
  Receipt Date: 20121128
  Transmission Date: 20130627
  Serious: Yes (Life-Threatening)
  Sender: FDA-Public Use
  Company Number: None

PATIENT
  Age: 71 Year
  Sex: Female
  Weight: 95.26 kg

DRUGS (1)
  1. CLINDAMYCIN [Suspect]
     Indication: ANTIBIOTIC PROPHYLAXIS
     Dosage: 4 tabs on pres.  1 hr before Dental Appt.  Was Capsules  one time only
     Dates: start: 20120920

REACTIONS (6)
  - Pruritus generalised [None]
  - Swelling face [None]
  - Lip swelling [None]
  - Pharyngeal oedema [None]
  - Swollen tongue [None]
  - Rash [None]
